FAERS Safety Report 6401810-1 (Version None)
Quarter: 2009Q4

REPORT INFORMATION
  Report Type: 
  Country: None (occurrence: None)
  Receive Date: 20091015
  Receipt Date: 20090924
  Transmission Date: 20100525
  Serious: Yes (Hospitalization)
  Sender: FDA-Public Use
  Company Number: DE-PFIZER INC-2008152230

PATIENT
  Age: 76 Year

DRUGS (19)
  1. VORICONAZOLE [Suspect]
     Indication: FEBRILE NEUTROPENIA
     Dosage: 600 MG, 1X/DAY
     Route: 042
     Dates: start: 20081019, end: 20081021
  2. FRAGMIN [Suspect]
     Dosage: 5000 IU, 1X/DAY
     Route: 058
     Dates: start: 20081007, end: 20081010
  3. KALINOR-BRAUSETABLETTEN [Concomitant]
     Dosage: UNK
     Route: 048
     Dates: start: 20081017, end: 20081017
  4. KALINOR-BRAUSETABLETTEN [Concomitant]
     Dosage: UNK
     Route: 048
     Dates: start: 20081020, end: 20081020
  5. KALINOR-BRAUSETABLETTEN [Concomitant]
     Dosage: UNK
     Route: 048
     Dates: start: 20081023, end: 20081023
  6. LASIX [Concomitant]
     Dosage: UNK
     Route: 048
     Dates: start: 20081017
  7. CETIRIZINE [Concomitant]
     Dosage: 10 MG, UNK
     Route: 048
     Dates: start: 20081009
  8. ACIC [Concomitant]
     Dosage: UNK
     Route: 048
     Dates: start: 20080930
  9. CIPRO [Concomitant]
     Dosage: UNK
     Route: 048
     Dates: start: 20080930
  10. TURIXIN [Concomitant]
     Dosage: UNK
     Route: 048
     Dates: start: 20080930, end: 20081030
  11. AMPHOTERICIN B [Concomitant]
     Dosage: UNK
     Route: 048
     Dates: start: 20080930, end: 20081030
  12. GRANOCYTE [Concomitant]
     Dosage: UNK
     Route: 048
     Dates: start: 20081011, end: 20081103
  13. ZIENAM [Concomitant]
     Dosage: 500 MG, UNK
     Route: 042
     Dates: start: 20081020, end: 20081021
  14. VANCOMYCIN [Concomitant]
     Dosage: 1 G, UNK
     Route: 042
     Dates: start: 20081020, end: 20081030
  15. PARACETAMOL [Concomitant]
     Dosage: UNK
     Route: 048
     Dates: start: 20081020, end: 20081021
  16. POTASSIUM CHLORIDE [Concomitant]
     Dosage: UNK
     Route: 042
     Dates: start: 20081022, end: 20081023
  17. ACETAMINOPHEN [Concomitant]
     Dosage: 1 G, UNK
     Route: 042
     Dates: start: 20081021, end: 20081021
  18. TAZOBAC [Concomitant]
     Dosage: UNK
     Route: 042
     Dates: start: 20081022, end: 20081030
  19. VFEND [Concomitant]
     Dosage: UNK
     Route: 042
     Dates: start: 20081022, end: 20081030

REACTIONS (1)
  - ABSCESS [None]
